FAERS Safety Report 15550304 (Version 4)
Quarter: 2019Q2

REPORT INFORMATION
  Report Type: Spontaneous
  Country: US (occurrence: US)
  Receive Date: 20181025
  Receipt Date: 20190514
  Transmission Date: 20190711
  Serious: Yes (Other)
  Sender: FDA-Public Use
  Company Number: US-GLAXOSMITHKLINE-US2018192757

PATIENT
  Sex: Female

DRUGS (2)
  1. VENTOLIN HFA [Suspect]
     Active Substance: ALBUTEROL SULFATE
     Indication: PRODUCT USED FOR UNKNOWN INDICATION
     Dosage: UNK
     Route: 055
  2. VENTOLIN HFA [Suspect]
     Active Substance: ALBUTEROL SULFATE
     Dosage: UNK

REACTIONS (14)
  - Accidental device ingestion [Unknown]
  - Dizziness [Not Recovered/Not Resolved]
  - Cough [Unknown]
  - Inappropriate schedule of product administration [Unknown]
  - Emotional distress [Unknown]
  - Dyspnoea [Unknown]
  - Product complaint [Unknown]
  - Foreign body aspiration [Unknown]
  - Product storage error [Unknown]
  - Lung disorder [Unknown]
  - Product dose omission [Unknown]
  - Loss of consciousness [Unknown]
  - Asthma [Unknown]
  - Overdose [Unknown]
